FAERS Safety Report 7323357-0 (Version None)
Quarter: 2011Q1

REPORT INFORMATION
  Report Type: 
  Country: None (occurrence: None)
  Receive Date: 20110301
  Receipt Date: 20110223
  Transmission Date: 20110831
  Serious: Yes (Life-Threatening, Hospitalization, Other)
  Sender: FDA-Public Use
  Company Number: DE-ELI_LILLY_AND_COMPANY-DE201102006598

PATIENT
  Age: 71 Year
  Sex: Female

DRUGS (5)
  1. VITAMIN D [Concomitant]
  2. FORTEO [Suspect]
     Indication: OSTEOPOROSIS
     Route: 058
     Dates: start: 20090827
  3. CORTISON [Concomitant]
  4. CALCIUM [Concomitant]
  5. HEPARIN [Concomitant]

REACTIONS (2)
  - PULMONARY THROMBOSIS [None]
  - CIRCULATORY COLLAPSE [None]
